FAERS Safety Report 5564594-5 (Version None)
Quarter: 2007Q4

REPORT INFORMATION
  Report Type: 
  Country: None (occurrence: None)
  Receive Date: 20071212
  Receipt Date: 20071205
  Transmission Date: 20080405
  Serious: Yes (Hospitalization)
  Sender: FDA-Public Use
  Company Number: E2090-00058-SPO-JP

PATIENT
  Age: 30 Year
  Sex: Female

DRUGS (6)
  1. ZONISAMIDE [Suspect]
     Indication: EPILEPSY
     Dosage: 200 MG OR 400 MG OR 800 MG, ORAL
     Route: 048
     Dates: start: 20060107, end: 20060210
  2. LOXONIN (LOXOPROFEN SODIUM) [Concomitant]
  3. MUCOSTA(REBAMIPIDE) [Concomitant]
  4. GASPER  D(FAMOTIDINE) [Concomitant]
  5. ZOLPIDEM TARTRATE [Concomitant]
  6. CERES (VALPROATE SODIUM) [Concomitant]

REACTIONS (11)
  - ABDOMINAL PAIN UPPER [None]
  - ALANINE AMINOTRANSFERASE INCREASED [None]
  - ASPARTATE AMINOTRANSFERASE INCREASED [None]
  - BLOOD IMMUNOGLOBULIN G INCREASED [None]
  - DRUG RASH WITH EOSINOPHILIA AND SYSTEMIC SYMPTOMS [None]
  - GAMMA-GLUTAMYLTRANSFERASE INCREASED [None]
  - HUMAN HERPES VIRUS 6 SEROLOGY POSITIVE [None]
  - IMMUNOGLOBULINS DECREASED [None]
  - LYMPHOCYTE STIMULATION TEST POSITIVE [None]
  - NAUSEA [None]
  - VISUAL ACUITY REDUCED [None]
